FAERS Safety Report 18974920 (Version 1)
Quarter: 2021Q1

REPORT INFORMATION
  Report Type: Spontaneous
  Country: FR (occurrence: FR)
  Receive Date: 20210305
  Receipt Date: 20210305
  Transmission Date: 20210420
  Serious: Yes (Life-Threatening, Hospitalization, Other)
  Sender: FDA-Public Use
  Company Number: NVSC2021FR051907

PATIENT
  Sex: Female

DRUGS (2)
  1. ADALIMUMAB [Suspect]
     Active Substance: ADALIMUMAB
     Indication: BEHCET^S SYNDROME
     Dosage: UNK
     Route: 065
  2. APREMILAST [Suspect]
     Active Substance: APREMILAST
     Indication: BEHCET^S SYNDROME
     Dosage: 30 MILLIGRAM, BID
     Route: 048

REACTIONS (19)
  - Headache [Unknown]
  - Fatigue [Unknown]
  - Gastrointestinal disorder [Unknown]
  - Therapeutic product effect incomplete [Unknown]
  - Abdominal pain [Unknown]
  - Suicidal ideation [Unknown]
  - Decreased appetite [Unknown]
  - Mycobacterial infection [Unknown]
  - Drug ineffective [Unknown]
  - Behcet^s syndrome [Unknown]
  - Depression [Unknown]
  - Enteritis [Unknown]
  - Nausea [Unknown]
  - Cat scratch disease [Unknown]
  - Diarrhoea [Unknown]
  - Gastroenteritis [Unknown]
  - Drug intolerance [Unknown]
  - Sleep disorder [Unknown]
  - Herpes simplex [Unknown]
